FAERS Safety Report 23425132 (Version 1)
Quarter: 2024Q1

REPORT INFORMATION
  Report Type: Spontaneous
  Country: CN (occurrence: CN)
  Receive Date: 20240121
  Receipt Date: 20240121
  Transmission Date: 20240410
  Serious: Yes (Disabling, Other)
  Sender: FDA-Public Use
  Company Number: None

PATIENT
  Age: 43 Year
  Sex: Female
  Weight: 74 kg

DRUGS (8)
  1. MESNA [Suspect]
     Active Substance: MESNA
     Dosage: UNK, AFTER CHEMOTHERAPY
     Route: 065
  2. CYCLOPHOSPHAMIDE [Suspect]
     Active Substance: CYCLOPHOSPHAMIDE
     Indication: Breast cancer female
     Dosage: 1.1 G, Q2W, D1, FIRST CYCLE OF CHEMOTHERAPY
     Route: 041
  3. CYCLOPHOSPHAMIDE [Suspect]
     Active Substance: CYCLOPHOSPHAMIDE
     Dosage: 1.1 G, Q2W, D1, AS A PART OF INTENSIVE EC REGIMEN, SECOND CYCLE
     Route: 041
     Dates: start: 20231224, end: 20231224
  4. EPIRUBICIN HYDROCHLORIDE [Suspect]
     Active Substance: EPIRUBICIN HYDROCHLORIDE
     Indication: Breast cancer female
     Dosage: 180 MG, ONE TIME IN ONE DAY, D1, FIRST CYCLE OF CHEMOTHERAPY
     Route: 041
  5. EPIRUBICIN HYDROCHLORIDE [Suspect]
     Active Substance: EPIRUBICIN HYDROCHLORIDE
     Dosage: 180 MG, ONE TIME IN ONE DAY, D1, AS A PART OF INTENSIVE EC REGIMEN, SECOND CYCLE
     Route: 041
     Dates: start: 20231224, end: 20231224
  6. ONDANSETRON [Suspect]
     Active Substance: ONDANSETRON
     Indication: Prophylaxis of nausea and vomiting
     Dosage: UNK, BEFORE CHEMOTHERAPY
     Route: 065
  7. METOCLOPRAMIDE [Suspect]
     Active Substance: METOCLOPRAMIDE
     Indication: Prophylaxis of nausea and vomiting
     Dosage: UNK, BEFORE CHEMOTHERAPY
     Route: 065
  8. OLANZAPINE [Suspect]
     Active Substance: OLANZAPINE
     Indication: Prophylaxis of nausea and vomiting
     Dosage: UNK, BEFORE CHEMOTHERAPY
     Route: 065

REACTIONS (2)
  - White blood cell count decreased [Recovered/Resolved]
  - Granulocyte count decreased [Recovered/Resolved]

NARRATIVE: CASE EVENT DATE: 20240101
